FAERS Safety Report 13992094 (Version 1)
Quarter: 2017Q3

REPORT INFORMATION
  Report Type: Spontaneous
  Country: US (occurrence: US)
  Receive Date: 20170920
  Receipt Date: 20170920
  Transmission Date: 20171128
  Serious: No
  Sender: FDA-Public Use
  Company Number: US-JNJFOC-20160422808

PATIENT
  Age: 15 Year
  Sex: Female

DRUGS (1)
  1. VERMOX [Suspect]
     Active Substance: MEBENDAZOLE
     Indication: ENTEROBIASIS
     Dosage: MORE THAN ONCE EVERY 2 WEEKS
     Route: 048
     Dates: start: 201604

REACTIONS (1)
  - Drug ineffective [Unknown]
